FAERS Safety Report 9715632 (Version 18)
Quarter: 2015Q3

REPORT INFORMATION
  Report Type: Report from Study
  Country: CA (occurrence: CA)
  Receive Date: 20131127
  Receipt Date: 20150901
  Transmission Date: 20151125
  Serious: Yes (Other)
  Sender: FDA-Public Use
  Company Number: CA-ROCHE-1309640

PATIENT
  Age: 78 Year
  Sex: Female
  Weight: 47 kg

DRUGS (12)
  1. ACTEMRA [Suspect]
     Active Substance: TOCILIZUMAB
     Route: 042
     Dates: start: 20150116
  2. ARAVA [Concomitant]
     Active Substance: LEFLUNOMIDE
  3. TRAZODONE [Concomitant]
     Active Substance: TRAZODONE HYDROCHLORIDE
  4. ACTEMRA [Suspect]
     Active Substance: TOCILIZUMAB
     Indication: RHEUMATOID ARTHRITIS
     Route: 042
     Dates: start: 20131118
  5. FISH OIL [Concomitant]
     Active Substance: FISH OIL
  6. PREDNISONE. [Suspect]
     Active Substance: PREDNISONE
     Indication: PRODUCT USED FOR UNKNOWN INDICATION
     Route: 065
  7. PANTOLOC [Concomitant]
     Active Substance: PANTOPRAZOLE SODIUM
  8. VITAMIN E [Concomitant]
     Active Substance: .ALPHA.-TOCOPHEROL
  9. ACTEMRA [Suspect]
     Active Substance: TOCILIZUMAB
     Route: 042
     Dates: start: 20150212
  10. VITAMIN C [Concomitant]
     Active Substance: ASCORBIC ACID
  11. FOLIC ACID. [Concomitant]
     Active Substance: FOLIC ACID
  12. FLURAZEPAM [Concomitant]
     Active Substance: FLURAZEPAM\FLURAZEPAM HYDROCHLORIDE

REACTIONS (21)
  - Vomiting [Recovering/Resolving]
  - Abdominal distension [Recovering/Resolving]
  - Weight decreased [Unknown]
  - Rheumatoid arthritis [Not Recovered/Not Resolved]
  - Infusion related reaction [Unknown]
  - Nasopharyngitis [Not Recovered/Not Resolved]
  - Fall [Unknown]
  - Sleep disorder [Not Recovered/Not Resolved]
  - Arthralgia [Recovering/Resolving]
  - Fracture displacement [Unknown]
  - Pulse absent [Unknown]
  - Abdominal pain upper [Unknown]
  - Pain [Recovered/Resolved]
  - Diarrhoea [Recovering/Resolving]
  - Pain in extremity [Unknown]
  - Neck pain [Recovering/Resolving]
  - Musculoskeletal discomfort [Unknown]
  - Pain in extremity [Recovering/Resolving]
  - Pneumonia [Unknown]
  - Nausea [Unknown]
  - Joint effusion [Unknown]

NARRATIVE: CASE EVENT DATE: 20131119
